FAERS Safety Report 21503884 (Version 2)
Quarter: 2023Q1

REPORT INFORMATION
  Report Type: Spontaneous
  Country: US (occurrence: US)
  Receive Date: 20221025
  Receipt Date: 20230127
  Transmission Date: 20230417
  Serious: Yes (Hospitalization)
  Sender: FDA-Public Use
  Company Number: US-VANDA PHARMACEUTICALS, INC-2022ILOUS001896

PATIENT
  Age: 84 Year
  Sex: Female
  Weight: 52.154 kg

DRUGS (1)
  1. FANAPT [Suspect]
     Active Substance: ILOPERIDONE
     Indication: Schizophrenia
     Dosage: TITRATION PACK
     Route: 065
     Dates: start: 20221017, end: 20221018

REACTIONS (2)
  - Urinary tract infection [Unknown]
  - Urosepsis [Unknown]

NARRATIVE: CASE EVENT DATE: 20221018
